FAERS Safety Report 15157561 (Version 1)
Quarter: 2018Q3

REPORT INFORMATION
  Report Type: Spontaneous
  Country: US (occurrence: US)
  Receive Date: 20180718
  Receipt Date: 20180718
  Transmission Date: 20181010
  Serious: No
  Sender: FDA-Public Use
  Company Number: US-009507513-1001USA01916

PATIENT
  Age: 16 Year
  Sex: Female

DRUGS (6)
  1. TENOFOVIR DISOPROXIL FUMARATE. [Suspect]
     Active Substance: TENOFOVIR DISOPROXIL FUMARATE
     Dosage: 1 DF, QD
  2. ETRAVIRINE [Suspect]
     Active Substance: ETRAVIRINE
     Dosage: 400 MG, QD
  3. EMTRICITABINE [Suspect]
     Active Substance: EMTRICITABINE
  4. ISENTRESS [Suspect]
     Active Substance: RALTEGRAVIR POTASSIUM
     Dosage: 800 MG, QD
     Route: 048
  5. ZIDOVUDINE. [Suspect]
     Active Substance: ZIDOVUDINE
     Dosage: 600 MG, QD
  6. ZIDOVUDINE. [Suspect]
     Active Substance: ZIDOVUDINE
     Dosage: 2 DF, QD
     Route: 042

REACTIONS (2)
  - Exposure during pregnancy [Recovered/Resolved]
  - No adverse event [Unknown]
